FAERS Safety Report 4601209-4 (Version None)
Quarter: 2005Q1

REPORT INFORMATION
  Report Type: 
  Country: None (occurrence: None)
  Receive Date: 20050308
  Receipt Date: 20050223
  Transmission Date: 20050727
  Serious: Yes (Other)
  Sender: FDA-Public Use
  Company Number: AU-JNJFOC-20041102361

PATIENT
  Sex: Female

DRUGS (1)
  1. CAELYX [Suspect]
     Dosage: 2ND CYCLE
     Route: 042

REACTIONS (8)
  - BREAST CANCER METASTATIC [None]
  - COUGH [None]
  - DYSPNOEA [None]
  - INFUSION RELATED REACTION [None]
  - LUNG INFILTRATION [None]
  - MALIGNANT NEOPLASM PROGRESSION [None]
  - NAUSEA [None]
  - RASH MACULAR [None]
